FAERS Safety Report 6100014-X (Version None)
Quarter: 2009Q1

REPORT INFORMATION
  Report Type: 
  Country: None (occurrence: None)
  Receive Date: 20090303
  Receipt Date: 20090224
  Transmission Date: 20090719
  Serious: Yes (Death)
  Sender: FDA-Public Use
  Company Number: A0771167A

PATIENT
  Age: 44 Year
  Sex: Male

DRUGS (3)
  1. ZANTAC [Suspect]
     Route: 048
  2. PLAVIX [Suspect]
     Indication: MYOCARDIAL INFARCTION
     Dosage: 75MGD PER DAY
     Route: 048
  3. LIPITOR [Concomitant]

REACTIONS (2)
  - DRUG INTERACTION [None]
  - MYOCARDIAL INFARCTION [None]
